FAERS Safety Report 8557486-0 (Version None)
Quarter: 2012Q3

REPORT INFORMATION
  Report Type: 
  Country: None (occurrence: None)
  Receive Date: 20120725
  Receipt Date: 20120725
  Transmission Date: 20120928
  Serious: Yes (Life-Threatening)
  Sender: FDA-Public Use
  Company Number: None

PATIENT
  Age: 48 Year
  Sex: Male
  Weight: 66.6788 kg

DRUGS (1)
  1. HUMULIN N [Suspect]
     Indication: TYPE 1 DIABETES MELLITUS
     Dates: start: 20120704, end: 20120709

REACTIONS (2)
  - PRODUCT FORMULATION ISSUE [None]
  - HYPOGLYCAEMIA [None]
